FAERS Safety Report 16022198 (Version 1)
Quarter: 2019Q2

REPORT INFORMATION
  Report Type: Spontaneous
  Country: US (occurrence: US)
  Receive Date: 20190301
  Receipt Date: 20190301
  Transmission Date: 20190711
  Serious: No
  Sender: FDA-Public Use
  Company Number: None

PATIENT
  Age: 20 Year
  Sex: Female
  Weight: 78.47 kg

DRUGS (1)
  1. NEXPLANON [Suspect]
     Active Substance: ETONOGESTREL

REACTIONS (5)
  - Pain in extremity [None]
  - Ulnar nerve injury [None]
  - Implantation complication [None]
  - Device dislocation [None]
  - Paraesthesia [None]

NARRATIVE: CASE EVENT DATE: 20170306
